FAERS Safety Report 7734499-X (Version None)
Quarter: 2011Q3

REPORT INFORMATION
  Report Type: 
  Country: None (occurrence: None)
  Receive Date: 20110907
  Receipt Date: 20110826
  Transmission Date: 20111222
  Serious: Yes (Hospitalization)
  Sender: FDA-Public Use
  Company Number: US-GLAXOSMITHKLINE-A0897051A

PATIENT
  Age: 78 Year
  Sex: Female

DRUGS (4)
  1. SYNTHROID [Concomitant]
  2. EVISTA [Concomitant]
  3. AVANDIA [Suspect]
     Indication: TYPE 2 DIABETES MELLITUS
     Dosage: 4MG TWICE PER DAY
     Route: 048
     Dates: start: 20040406, end: 20070301
  4. AMARYL [Concomitant]

REACTIONS (4)
  - ATRIAL FIBRILLATION [None]
  - HYPERLIPIDAEMIA [None]
  - CARDIAC FAILURE CONGESTIVE [None]
  - HYPERTENSION [None]
